FAERS Safety Report 21222116 (Version 1)
Quarter: 2022Q3

REPORT INFORMATION
  Report Type: Spontaneous
  Country: US (occurrence: None)
  Receive Date: 20220816
  Receipt Date: 20220816
  Transmission Date: 20221027
  Serious: Yes (Hospitalization)
  Sender: FDA-Public Use
  Company Number: None

PATIENT
  Age: 59 Year
  Sex: Female

DRUGS (1)
  1. REBIF REBIDOSE [Suspect]
     Active Substance: INTERFERON BETA-1A
     Indication: Multiple sclerosis
     Dosage: OTHER STRENGTH : 44/0.5 UG/ML;?
     Route: 058
     Dates: start: 202111

REACTIONS (2)
  - Multiple sclerosis relapse [None]
  - Dyspnoea [None]

NARRATIVE: CASE EVENT DATE: 20220802
